FAERS Safety Report 6823385-5 (Version None)
Quarter: 2010Q3

REPORT INFORMATION
  Report Type: 
  Country: None (occurrence: None)
  Receive Date: 20100708
  Receipt Date: 20100628
  Transmission Date: 20110219
  Serious: Yes (Congenital Anomaly, Other)
  Sender: FDA-Public Use
  Company Number: ES-PFIZER INC-2010080103

PATIENT
  Sex: Female

DRUGS (1)
  1. CYTOTEC [Suspect]
     Dosage: UNK
     Route: 048

REACTIONS (1)
  - CONGENITAL MULTIPLEX ARTHROGRYPOSIS [None]
